FAERS Safety Report 8495336-1 (Version None)
Quarter: 2012Q3

REPORT INFORMATION
  Report Type: 
  Country: None (occurrence: None)
  Receive Date: 20120709
  Receipt Date: 20120628
  Transmission Date: 20120928
  Serious: Yes (Other)
  Sender: FDA-Public Use
  Company Number: US-BAYER-2012-065656

PATIENT
  Age: 19 Year
  Sex: Female

DRUGS (12)
  1. YASMIN [Suspect]
     Indication: MENSTRUATION IRREGULAR
  2. ZOLOFT [Concomitant]
     Dosage: UNK
  3. CEFTIN [Concomitant]
     Dosage: 250 MG, UNK
     Dates: start: 20101203
  4. YAZ [Suspect]
     Dosage: UNK
  5. DROSPIRENONE AND ETHINYL ESTRADIOL [Suspect]
  6. ALLEGRA [Concomitant]
  7. LORTAB [Concomitant]
  8. PHENERGAN SYRUP W/CODEINE [Concomitant]
     Dosage: UNK
     Dates: start: 20101203
  9. PHENTERMINE [Concomitant]
     Dosage: 37.5 UNK, UNK
     Dates: start: 20101202
  10. SUMATRIPTAN [Concomitant]
     Dosage: 100 MG, UNK
     Dates: start: 20110307
  11. NAPROXEN [Concomitant]
     Dosage: 500 MG, UNK
     Dates: start: 20110305
  12. DIFLUCAN [Concomitant]
     Dosage: UNK
     Dates: start: 20101203

REACTIONS (1)
  - DEEP VEIN THROMBOSIS [None]
